FAERS Safety Report 19647583 (Version 2)
Quarter: 2021Q3

REPORT INFORMATION
  Report Type: Spontaneous
  Country: US (occurrence: US)
  Receive Date: 20210802
  Receipt Date: 20210810
  Transmission Date: 20211014
  Serious: No
  Sender: FDA-Public Use
  Company Number: US-BAYER-2021-185916

PATIENT
  Age: 30 Year
  Sex: Male

DRUGS (1)
  1. KOGENATE FS [Suspect]
     Active Substance: ANTIHEMOPHILIC FACTOR, HUMAN RECOMBINANT
     Dosage: 1 DF
     Route: 042
     Dates: start: 202107

REACTIONS (1)
  - Neck pain [Recovered/Resolved]

NARRATIVE: CASE EVENT DATE: 20210715
